FAERS Safety Report 6753547-7 (Version None)
Quarter: 2010Q2

REPORT INFORMATION
  Report Type: 
  Country: None (occurrence: None)
  Receive Date: 20100603
  Receipt Date: 20100527
  Transmission Date: 20101027
  Serious: Yes (Other)
  Sender: FDA-Public Use
  Company Number: GB-GENENTECH-298944

PATIENT
  Sex: Female

DRUGS (5)
  1. MABTHERA [Suspect]
     Indication: RHEUMATOID ARTHRITIS
     Dosage: 1000 MG, UNK
     Route: 042
     Dates: start: 20091118, end: 20091201
  2. CODEINE SULFATE [Concomitant]
     Indication: PAIN
     Dosage: 60 MG, UNK
     Route: 048
     Dates: start: 20070101
  3. PARACETAMOL [Concomitant]
     Indication: PAIN
     Dosage: 1 G, UNK
     Route: 048
     Dates: start: 20070101
  4. AMITRIPTYLINE [Concomitant]
     Indication: PAIN
     Dosage: 25 MG, UNK
     Route: 048
     Dates: start: 20090601
  5. ADCAL-D3 [Concomitant]
     Indication: DRUG USE FOR UNKNOWN INDICATION
     Dosage: 1 DF, UNK

REACTIONS (2)
  - COLITIS ULCERATIVE [None]
  - DYSPEPSIA [None]
